FAERS Safety Report 8839492 (Version 3)
Quarter: 2012Q4

REPORT INFORMATION
  Report Type: 
  Country: JP (occurrence: JP)
  Receive Date: 20121015
  Receipt Date: 20121227
  Transmission Date: 20130627
  Serious: Yes (Hospitalization)
  Sender: FDA-Public Use
  Company Number: JP-VERTEX PHARMACEUTICAL INC.-2012-022593

PATIENT
  Age: 36 Year
  Sex: Female

DRUGS (3)
  1. TELAVIC [Suspect]
     Indication: CHRONIC HEPATITIS C
     Dosage: 2250 mg, qd
     Route: 048
     Dates: start: 20121001, end: 20121003
  2. PEGINTRON [Concomitant]
     Dosage: 1.5 ?g/kg, qw
     Route: 058
     Dates: start: 20121001
  3. REBETOL [Concomitant]
     Dosage: 600 mg, qd
     Route: 048
     Dates: start: 20121001

REACTIONS (1)
  - Toxic skin eruption [Recovered/Resolved]
